FAERS Safety Report 20510144 (Version 1)
Quarter: 2022Q1

REPORT INFORMATION
  Report Type: Spontaneous
  Country: FR (occurrence: FR)
  Receive Date: 20220224
  Receipt Date: 20220224
  Transmission Date: 20220424
  Serious: Yes (Death, Hospitalization)
  Sender: FDA-Public Use
  Company Number: FR-CELGENE-FRA-20220205686

PATIENT
  Age: 74 Year
  Sex: Female
  Weight: 70.7 kg

DRUGS (13)
  1. AZACITIDINE [Suspect]
     Active Substance: AZACITIDINE
     Indication: Acute myeloid leukaemia
     Route: 058
     Dates: start: 20210802, end: 20220207
  2. VENETOCLAX [Suspect]
     Active Substance: VENETOCLAX
     Indication: Acute myeloid leukaemia
     Route: 048
     Dates: start: 20210802
  3. VENETOCLAX [Suspect]
     Active Substance: VENETOCLAX
     Route: 048
     Dates: start: 20210803
  4. VENETOCLAX [Suspect]
     Active Substance: VENETOCLAX
     Route: 048
     Dates: start: 20210804
  5. VENETOCLAX [Suspect]
     Active Substance: VENETOCLAX
     Route: 048
     Dates: start: 20211213
  6. IMOVANE [Concomitant]
     Active Substance: ZOPICLONE
     Indication: Insomnia
     Route: 065
     Dates: start: 20210830
  7. POSACONAZOLE [Concomitant]
     Active Substance: POSACONAZOLE
     Indication: Antifungal prophylaxis
     Route: 065
     Dates: start: 20210213
  8. SERETIDE [Concomitant]
     Active Substance: FLUTICASONE PROPIONATE\SALMETEROL XINAFOATE
     Indication: Asthma
     Route: 065
  9. ALBUTEROL [Concomitant]
     Active Substance: ALBUTEROL
     Indication: Asthma
     Route: 065
  10. LEVOTHYROXINE [Concomitant]
     Active Substance: LEVOTHYROXINE
     Indication: Infection prophylaxis
     Route: 065
     Dates: start: 1987
  11. ROCALTROL [Concomitant]
     Active Substance: CALCITRIOL
     Indication: Prophylaxis
     Route: 065
  12. LEVOFLOXACIN [Concomitant]
     Active Substance: LEVOFLOXACIN
     Indication: Infection prophylaxis
     Route: 065
     Dates: start: 20210802
  13. Orocal [Concomitant]
     Indication: Prophylaxis
     Route: 065

REACTIONS (3)
  - Septic shock [Fatal]
  - General physical health deterioration [Not Recovered/Not Resolved]
  - Diarrhoea [Not Recovered/Not Resolved]

NARRATIVE: CASE EVENT DATE: 20220213
